FAERS Safety Report 7722350-3 (Version None)
Quarter: 2011Q3

REPORT INFORMATION
  Report Type: 
  Country: None (occurrence: None)
  Receive Date: 20110831
  Receipt Date: 20110822
  Transmission Date: 20111222
  Serious: Yes (Hospitalization, Other)
  Sender: FDA-Public Use
  Company Number: US-US-EMD SERONO, INC.-7060738

PATIENT
  Sex: Female

DRUGS (3)
  1. REBIF [Suspect]
     Indication: MULTIPLE SCLEROSIS
     Route: 058
     Dates: start: 20100219
  2. BLOOD THINNERS [Concomitant]
     Indication: THROMBOSIS
  3. REBIF [Suspect]
     Route: 058

REACTIONS (6)
  - PULMONARY THROMBOSIS [None]
  - NASOPHARYNGITIS [None]
  - KIDNEY INFECTION [None]
  - HAEMOGLOBIN DECREASED [None]
  - HAEMATOCRIT DECREASED [None]
  - INJECTION SITE ERYTHEMA [None]
